FAERS Safety Report 14826271 (Version 1)
Quarter: 2018Q2

REPORT INFORMATION
  Report Type: Spontaneous
  Country: FR (occurrence: FR)
  Receive Date: 20180430
  Receipt Date: 20180430
  Transmission Date: 20180711
  Serious: Yes (Other)
  Sender: FDA-Public Use
  Company Number: FR-MERCK KGAA-2046835

PATIENT
  Age: 40 Year
  Sex: Female

DRUGS (1)
  1. NOVOTHYROX [Suspect]
     Active Substance: LEVOTHYROXINE SODIUM
     Indication: AUTOIMMUNE THYROIDITIS
     Dates: start: 201704

REACTIONS (14)
  - Arrhythmia [None]
  - Fatigue [None]
  - Alopecia [None]
  - Anxiety [None]
  - Asthenia [None]
  - Arthralgia [None]
  - Mood altered [None]
  - Bedridden [None]
  - Palpitations [None]
  - Hypothyroidism [None]
  - Myalgia [None]
  - Apathy [None]
  - Loss of libido [None]
  - Blood thyroid stimulating hormone increased [Recovered/Resolved]

NARRATIVE: CASE EVENT DATE: 20170923
